FAERS Safety Report 6856619-1 (Version None)
Quarter: 2010Q3

REPORT INFORMATION
  Report Type: 
  Country: None (occurrence: None)
  Receive Date: 20100716
  Receipt Date: 20100716
  Transmission Date: 20110219
  Serious: Yes (Other)
  Sender: FDA-Public Use
  Company Number: None

PATIENT
  Sex: Male
  Weight: 90.7194 kg

DRUGS (1)
  1. LIDOCAINE MPF 1% APP PHARMACEUTICALS, SCHAUMBURG, IL 60173 [Suspect]
     Indication: ANAESTHESIA
     Dosage: APPROXIMATELY 100-200 ONE TIME INTRACAMERAL
     Dates: start: 20100624

REACTIONS (2)
  - PRODUCT QUALITY ISSUE [None]
  - TOXIC ANTERIOR SEGMENT SYNDROME [None]
